FAERS Safety Report 8443670-3 (Version None)
Quarter: 2012Q2

REPORT INFORMATION
  Report Type: 
  Country: None (occurrence: None)
  Receive Date: 20120618
  Receipt Date: 20120524
  Transmission Date: 20120825
  Serious: No
  Sender: FDA-Public Use
  Company Number: US-JNJFOC-20120520671

PATIENT

DRUGS (1)
  1. INVEGA SUSTENNA [Suspect]
     Indication: PRODUCT USED FOR UNKNOWN INDICATION
     Dosage: 156 MG ONLY ADMINISTERED
     Route: 030

REACTIONS (2)
  - PRODUCT QUALITY ISSUE [None]
  - UNDERDOSE [None]
